FAERS Safety Report 11857154 (Version 2)
Quarter: 2016Q1

REPORT INFORMATION
  Report Type: Spontaneous
  Country: US (occurrence: US)
  Receive Date: 20151221
  Receipt Date: 20160112
  Transmission Date: 20160526
  Serious: No
  Sender: FDA-Public Use
  Company Number: US-PFIZER INC-2015419521

PATIENT
  Age: 63 Year
  Sex: Female
  Weight: 96 kg

DRUGS (23)
  1. METFORMIN [Concomitant]
     Active Substance: METFORMIN HYDROCHLORIDE
     Dosage: 1000 MG, 2X/DAY
     Route: 048
     Dates: start: 20150724
  2. FLUTICASONE [Concomitant]
     Active Substance: FLUTICASONE\FLUTICASONE PROPIONATE
     Dosage: 100 UG, DAILY (INHALE 1 SPRAY BY INTRANASAL ROUTE EVERY DAY IN EACH NOSTRIL)
     Route: 045
     Dates: start: 20140723
  3. ADVAIR HFA [Concomitant]
     Active Substance: FLUTICASONE PROPIONATE\SALMETEROL XINAFOATE
     Dosage: UNK, 2X/DAY (250 MCG-50 MCG/DOSE POWDER FOR INHALATION)
     Route: 045
     Dates: start: 20150723
  4. NOVOLOG [Concomitant]
     Active Substance: INSULIN ASPART
     Dosage: INJECT 20-30 UNITS PER SUBQ ROUTE PER PRESCRIBER^S INSTRUCTIONS BEFORE EACH MEAL
     Route: 058
     Dates: start: 20150415
  5. SYNTHROID [Concomitant]
     Active Substance: LEVOTHYROXINE SODIUM
     Dosage: 137 UG, DAILY
     Route: 048
     Dates: start: 20141111
  6. INSULIN [Concomitant]
     Active Substance: INSULIN NOS
     Dosage: UNK
     Dates: start: 20140520
  7. NOVOLOG [Concomitant]
     Active Substance: INSULIN ASPART
     Dosage: 20-30 UNITS BY SUBCUTANEOUS ROUTE BEFORE MEALS AND CORRECTIONS AS PER INSULIN SLIDING SCALE PROTOCOL
     Route: 058
     Dates: start: 20150506
  8. ALBUTEROL. [Concomitant]
     Active Substance: ALBUTEROL
     Dosage: 0.083 %, 3X/DAY
     Dates: start: 20150727
  9. ASPIRIN. [Concomitant]
     Active Substance: ASPIRIN
     Dosage: 81 MG, DAILY
     Route: 048
     Dates: start: 20120920
  10. BENZONATATE. [Concomitant]
     Active Substance: BENZONATATE
     Indication: COUGH
     Dosage: 200 MG, AS NEEDED (3 TIMES EVERY DAY)
     Route: 048
     Dates: start: 20150406
  11. DUONEB [Concomitant]
     Active Substance: ALBUTEROL SULFATE\IPRATROPIUM BROMIDE
     Dosage: 3 MG, 3X/DAY
     Route: 045
     Dates: start: 20151001
  12. LEVEMIR [Concomitant]
     Active Substance: INSULIN DETEMIR
     Dosage: INJECT 40 UNIT AM AND 40 UNIT PM
     Route: 058
     Dates: start: 20141022
  13. OMEPRAZOLE. [Concomitant]
     Active Substance: OMEPRAZOLE
     Dosage: 40 MG, DAILY
     Route: 048
     Dates: start: 20151116
  14. PROAIR HFA [Concomitant]
     Active Substance: ALBUTEROL SULFATE
     Dosage: (90 MCG/ACTUATION AEROSOL INHALER), AS NEEDED
     Route: 045
     Dates: start: 20140417
  15. VITAMIN D3 [Concomitant]
     Active Substance: CHOLECALCIFEROL
     Dosage: 4,000 UNIT CAPSULE, 5,000 DAILY
  16. CITALOPRAM [Concomitant]
     Active Substance: CITALOPRAM HYDROBROMIDE
     Dosage: 20 MG, DAILY
     Dates: start: 20140910
  17. HYDROCHLOROTHIAZIDE. [Concomitant]
     Active Substance: HYDROCHLOROTHIAZIDE
     Dosage: 25 MG, DAILY
     Route: 048
     Dates: start: 20151116
  18. NYSTATIN. [Concomitant]
     Active Substance: NYSTATIN
     Dosage: 2 TIMES EVERY DAY
     Route: 061
     Dates: start: 20151013
  19. CONTOUR [Concomitant]
     Indication: BLOOD GLUCOSE
     Dosage: UNK, 4X/DAY
     Dates: start: 20140527
  20. LISINOPRIL AND HYDROCHLOROTHIAZIDE [Concomitant]
     Active Substance: HYDROCHLOROTHIAZIDE\LISINOPRIL
     Dosage: 25 MG, DAILY
     Route: 048
     Dates: start: 20141124
  21. LYRICA [Suspect]
     Active Substance: PREGABALIN
     Indication: PAIN
     Dosage: 100 MG, 3X/DAY
     Route: 048
  22. MELOXICAM. [Concomitant]
     Active Substance: MELOXICAM
     Dosage: TAKE 1 TABLET BY ORAL ROUTE 1-2 TIMES EVERY DAY
     Route: 048
     Dates: start: 20151116
  23. SYNTHROID [Concomitant]
     Active Substance: LEVOTHYROXINE SODIUM
     Dosage: 150 UG, DAILY
     Route: 048
     Dates: start: 20150810

REACTIONS (4)
  - Arthralgia [Unknown]
  - Pain [Unknown]
  - Condition aggravated [Unknown]
  - Pain in extremity [Unknown]
